FAERS Safety Report 24647131 (Version 1)
Quarter: 2024Q4

REPORT INFORMATION
  Report Type: Spontaneous
  Country: JP (occurrence: JP)
  Receive Date: 20241121
  Receipt Date: 20241121
  Transmission Date: 20250115
  Serious: Yes (Other)
  Sender: PFIZER
  Company Number: JP-PFIZER INC-PV202400149332

PATIENT
  Age: 81 Year
  Sex: Male

DRUGS (1)
  1. TAFAMIDIS [Suspect]
     Active Substance: TAFAMIDIS
     Indication: Cardiac amyloidosis
     Dosage: UNK
     Route: 048
     Dates: start: 2021

REACTIONS (7)
  - Sinus arrest [Unknown]
  - Syncope [Unknown]
  - Loss of consciousness [Unknown]
  - Sinus bradycardia [Unknown]
  - Conduction disorder [Unknown]
  - Atrial tachycardia [Unknown]
  - QRS axis abnormal [Unknown]

NARRATIVE: CASE EVENT DATE: 20220401
